FAERS Safety Report 5368388-5 (Version None)
Quarter: 2007Q2

REPORT INFORMATION
  Report Type: 
  Country: None (occurrence: None)
  Receive Date: 20070621
  Receipt Date: 20070606
  Transmission Date: 20071010
  Serious: Yes (Hospitalization)
  Sender: FDA-Public Use
  Company Number: B0475152A

PATIENT
  Age: 50 Year
  Sex: Female

DRUGS (4)
  1. LAMOTRIGINE [Suspect]
     Dosage: ORAL
     Route: 048
  2. OLANZAPINE [Suspect]
     Dosage: ORAL
     Route: 048
  3. CITALOPRAM (FORMULATION UNKNOWN) (CITALOPRAM) [Suspect]
     Dosage: ORAL
     Route: 048
  4. ZOPICLONE (FORMULATION UNKNOWN) (ZOPICLONE) [Suspect]
     Dosage: ORAL
     Route: 048

REACTIONS (8)
  - ABNORMAL BEHAVIOUR [None]
  - BLOOD CREATINE PHOSPHOKINASE INCREASED [None]
  - DEPRESSED LEVEL OF CONSCIOUSNESS [None]
  - ELECTROCARDIOGRAM QT PROLONGED [None]
  - MULTIPLE DRUG OVERDOSE INTENTIONAL [None]
  - MYOCLONUS [None]
  - PNEUMONIA [None]
  - SEROTONIN SYNDROME [None]
